FAERS Safety Report 8471394-5 (Version None)
Quarter: 2012Q2

REPORT INFORMATION
  Report Type: 
  Country: None (occurrence: None)
  Receive Date: 20120627
  Receipt Date: 20120618
  Transmission Date: 20120825
  Serious: Yes (Other)
  Sender: FDA-Public Use
  Company Number: US-ASTRAZENECA-2012SE30727

PATIENT
  Age: 44 Year
  Sex: Female
  Weight: 88.5 kg

DRUGS (12)
  1. SEROQUEL [Suspect]
     Indication: BIPOLAR DISORDER
     Dosage: VARIOUS DOSES
     Route: 048
     Dates: start: 20070101
  2. SEROQUEL [Suspect]
     Route: 048
  3. SEROQUEL [Suspect]
     Route: 048
  4. PROZAC [Concomitant]
  5. SEROQUEL [Suspect]
     Route: 048
  6. SEROQUEL [Suspect]
     Route: 048
  7. OTHER MEDICATIONS [Concomitant]
  8. SEROQUEL [Suspect]
     Indication: SCHIZOPHRENIA
     Dosage: VARIOUS DOSES
     Route: 048
     Dates: start: 20070101
  9. SEROQUEL [Suspect]
     Route: 048
  10. TRILEPTAL [Concomitant]
     Indication: CONVULSION
  11. SEROQUEL [Suspect]
     Indication: MAJOR DEPRESSION
     Dosage: VARIOUS DOSES
     Route: 048
     Dates: start: 20070101
  12. SEROQUEL [Suspect]
     Route: 048

REACTIONS (3)
  - CONVULSION [None]
  - RHEUMATOID ARTHRITIS [None]
  - INTENTIONAL DRUG MISUSE [None]
